FAERS Safety Report 10866531 (Version 2)
Quarter: 2015Q2

REPORT INFORMATION
  Report Type: Spontaneous
  Country: FR (occurrence: FR)
  Receive Date: 20150225
  Receipt Date: 20150416
  Transmission Date: 20150821
  Serious: Yes (Life-Threatening, Hospitalization, Other)
  Sender: FDA-Public Use
  Company Number: FR-ALEXION PHARMACEUTICALS INC-A201500619

PATIENT

DRUGS (2)
  1. SOLIRIS [Suspect]
     Active Substance: ECULIZUMAB
     Indication: OFF LABEL USE
     Dosage: 1200 MG, Q2W
     Route: 042
     Dates: start: 20141117, end: 20150207
  2. SOLIRIS [Suspect]
     Active Substance: ECULIZUMAB
     Indication: CHRONIC ALLOGRAFT NEPHROPATHY
     Dosage: 900 MG, QW
     Route: 042
     Dates: start: 20141017, end: 20141117

REACTIONS (3)
  - Off label use [Unknown]
  - Acute kidney injury [Unknown]
  - Bronchopulmonary aspergillosis [Recovering/Resolving]

NARRATIVE: CASE EVENT DATE: 20141017
